FAERS Safety Report 4425523-0 (Version None)
Quarter: 2004Q3

REPORT INFORMATION
  Report Type: 
  Country: None (occurrence: None)
  Receive Date: 20040719
  Receipt Date: 20030721
  Transmission Date: 20050211
  Serious: Yes (Hospitalization)
  Sender: FDA-Public Use
  Company Number: 173064

PATIENT
  Age: 62 Year
  Sex: Female
  Weight: 136.0791 kg

DRUGS (8)
  1. AVONEX [Suspect]
     Indication: MULTIPLE SCLEROSIS
     Dates: start: 19980101
  2. SYNTHROIOD [Concomitant]
  3. GLUCOTROL [Concomitant]
  4. CARDIZEM [Concomitant]
  5. PHENERGAN ^SPECIA^ [Concomitant]
  6. XANAX [Concomitant]
  7. DETROL [Concomitant]
  8. ACTOS /USA/ [Concomitant]

REACTIONS (5)
  - CARDIAC FAILURE CONGESTIVE [None]
  - INFLUENZA LIKE ILLNESS [None]
  - INJECTION [None]
  - MULTIPLE SCLEROSIS [None]
  - MUSCULOSKELETAL STIFFNESS [None]
